FAERS Safety Report 16021867 (Version 1)
Quarter: 2019Q1

REPORT INFORMATION
  Report Type: Report from Study
  Country: JP (occurrence: JP)
  Receive Date: 20190301
  Receipt Date: 20190301
  Transmission Date: 20190418
  Serious: Yes (Other)
  Sender: FDA-Public Use
  Company Number: JP-ROCHE-2273770

PATIENT
  Age: 45 Year
  Sex: Female

DRUGS (2)
  1. PEGYLATED LIPOSOMAL DOXORUBICIN [Suspect]
     Active Substance: DOXORUBICIN
     Indication: OVARIAN CANCER RECURRENT
     Dosage: DAY 1
     Route: 042
  2. BEVACIZUMAB. [Suspect]
     Active Substance: BEVACIZUMAB
     Indication: OVARIAN CANCER RECURRENT
     Route: 042

REACTIONS (4)
  - Anaemia [Unknown]
  - Deep vein thrombosis [Not Recovered/Not Resolved]
  - Mucosal inflammation [Unknown]
  - Neutropenia [Unknown]
